FAERS Safety Report 16029049 (Version 1)
Quarter: 2019Q1

REPORT INFORMATION
  Report Type: Spontaneous
  Country: US (occurrence: US)
  Receive Date: 20190304
  Receipt Date: 20190304
  Transmission Date: 20190418
  Serious: No
  Sender: FDA-Public Use
  Company Number: US-009507513-1902USA002493

PATIENT
  Age: 34 Year
  Sex: Male

DRUGS (7)
  1. SUCRALFATE. [Concomitant]
     Active Substance: SUCRALFATE
  2. NORTRIPTYLINE [Concomitant]
     Active Substance: NORTRIPTYLINE
  3. PANTOPRAZOLE [Concomitant]
     Active Substance: PANTOPRAZOLE
  4. REMERON [Suspect]
     Active Substance: MIRTAZAPINE
     Indication: APPETITE DISORDER
     Route: 048
  5. ONDANSETRON [Concomitant]
     Active Substance: ONDANSETRON
  6. OMEPRAZOLE. [Concomitant]
     Active Substance: OMEPRAZOLE
  7. SIMETHICONE (DIMETHICONE) [Concomitant]
     Active Substance: DIMETHICONE
     Dosage: AS NEEDED

REACTIONS (2)
  - Product use in unapproved indication [Unknown]
  - Rash [Unknown]
